FAERS Safety Report 8088568-8 (Version None)
Quarter: 2012Q1

REPORT INFORMATION
  Report Type: 
  Country: None (occurrence: None)
  Receive Date: 20120128
  Receipt Date: 20110406
  Transmission Date: 20120608
  Serious: No
  Sender: FDA-Public Use
  Company Number: US-ABBOTT-11P-163-0717506-00

PATIENT
  Sex: Male
  Weight: 81.72 kg

DRUGS (2)
  1. ONDANSETRON HCL [Concomitant]
     Indication: NAUSEA
  2. HUMIRA [Suspect]
     Indication: CROHN'S DISEASE
     Dates: start: 20110323

REACTIONS (1)
  - INJECTION SITE PAIN [None]
